FAERS Safety Report 4771104-9 (Version None)
Quarter: 2005Q3

REPORT INFORMATION
  Report Type: 
  Country: None (occurrence: None)
  Receive Date: 20050914
  Receipt Date: 20050902
  Transmission Date: 20060218
  Serious: Yes (Hospitalization, Other)
  Sender: FDA-Public Use
  Company Number: 2005119319

PATIENT
  Age: 84 Year
  Sex: Female
  Weight: 90.7194 kg

DRUGS (11)
  1. NITROSTAT [Suspect]
     Indication: CHEST PAIN
     Dosage: 0.4 MG, SUBLINGUAL
     Route: 060
  2. NITROSTAT [Suspect]
  3. NITROGLYCERIN [Suspect]
     Indication: CHEST PAIN
     Dosage: TRANSDERMAL
     Route: 062
  4. PLAVIX [Concomitant]
  5. TOPROL (METOPROLOL) [Concomitant]
  6. PROTONIX [Concomitant]
  7. ZETIA [Concomitant]
  8. ECOTRIN (ACETYLSALICYLIC ACID) [Concomitant]
  9. IMDUR [Concomitant]
  10. LASIX [Concomitant]
  11. XALATAN [Concomitant]

REACTIONS (5)
  - ABASIA [None]
  - CARDIAC DISORDER [None]
  - CHEMICAL BURN OF SKIN [None]
  - DRUG INEFFECTIVE [None]
  - PHARMACEUTICAL PRODUCT COMPLAINT [None]
